FAERS Safety Report 9915567 (Version 1)
Quarter: 2014Q1

REPORT INFORMATION
  Report Type: Spontaneous
  Country: US (occurrence: US)
  Receive Date: 20140221
  Receipt Date: 20140221
  Transmission Date: 20141002
  Serious: Yes (Hospitalization)
  Sender: FDA-Public Use
  Company Number: US-AMGEN-USASP2014011707

PATIENT
  Age: 14 Year
  Sex: Female

DRUGS (1)
  1. NEUPOGEN [Suspect]
     Indication: CYCLIC NEUTROPENIA
     Dosage: 300 MUG, FOR 5 DAYS, APPROXIMATELY EVERY 20 DAYS
     Route: 065

REACTIONS (8)
  - Neutrophil count decreased [Unknown]
  - Pyrexia [Unknown]
  - Wrong technique in drug usage process [Unknown]
  - Injection site discomfort [Unknown]
  - Malaise [Unknown]
  - Inappropriate schedule of drug administration [Unknown]
  - Asthenia [Unknown]
  - Injection site pain [Unknown]
